FAERS Safety Report 6508576-5 (Version None)
Quarter: 2009Q4

REPORT INFORMATION
  Report Type: 
  Country: None (occurrence: None)
  Receive Date: 20091221
  Receipt Date: 20091209
  Transmission Date: 20100525
  Serious: Yes (Death, Other)
  Sender: FDA-Public Use
  Company Number: US-ELI_LILLY_AND_COMPANY-US200912002207

PATIENT
  Age: 90 Year
  Sex: Male

DRUGS (3)
  1. FORTEO [Suspect]
     Indication: OSTEOPOROSIS
     Dates: start: 20080101, end: 20090801
  2. CALCIUM [Concomitant]
  3. VITAMIN D [Concomitant]

REACTIONS (2)
  - LARGE CELL LUNG CANCER STAGE IV [None]
  - LUNG ADENOCARCINOMA [None]
